FAERS Safety Report 4919590-5 (Version None)
Quarter: 2006Q1

REPORT INFORMATION
  Report Type: 
  Country: None (occurrence: None)
  Receive Date: 20060222
  Receipt Date: 20050628
  Transmission Date: 20060701
  Serious: Yes (Hospitalization)
  Sender: FDA-Public Use
  Company Number: US-MERCK-0506USA04313

PATIENT
  Age: 62 Year
  Sex: Female

DRUGS (8)
  1. VIOXX [Suspect]
     Route: 048
  2. ZOCOR [Concomitant]
     Route: 048
  3. LISINOPRIL [Concomitant]
     Route: 048
  4. PROVIGIL [Concomitant]
     Route: 048
  5. PREMARIN [Concomitant]
     Route: 048
  6. PROTONIX [Concomitant]
     Route: 048
  7. MELATONIN [Concomitant]
     Route: 048
  8. LORATADINE [Concomitant]
     Route: 048

REACTIONS (10)
  - ACUTE MYOCARDIAL INFARCTION [None]
  - CHRONIC OBSTRUCTIVE PULMONARY DISEASE [None]
  - CONSTIPATION [None]
  - HYPERGLYCAEMIA [None]
  - ISCHAEMIC CARDIOMYOPATHY [None]
  - LEUKOCYTOSIS [None]
  - PALPITATIONS [None]
  - PULMONARY OEDEMA [None]
  - SHOCK [None]
  - STOMACH DISCOMFORT [None]
